FAERS Safety Report 5881005-0 (Version None)
Quarter: 2008Q3

REPORT INFORMATION
  Report Type: 
  Country: None (occurrence: None)
  Receive Date: 20080912
  Receipt Date: 20080616
  Transmission Date: 20090109
  Serious: No
  Sender: FDA-Public Use
  Company Number: US-ABBOTT-08P-163-0457866-00

PATIENT
  Sex: Male
  Weight: 76.272 kg

DRUGS (5)
  1. HUMIRA [Suspect]
     Indication: PSORIASIS
     Dosage: 2 SHOTS INITIALLY
     Route: 058
     Dates: start: 20080502
  2. HUMIRA [Suspect]
     Dates: end: 20080530
  3. TRIAMCINOLONE [Concomitant]
     Indication: PSORIASIS
     Route: 061
     Dates: start: 20050101
  4. TRIAMCINOLONE [Concomitant]
     Indication: RASH
  5. HIGH BLOOD PRESSURE MEDICATION (A CHEAP ONE) [Concomitant]
     Indication: HYPERTENSION
     Route: 048
     Dates: start: 19980101

REACTIONS (3)
  - BLOOD CREATININE INCREASED [None]
  - HAEMOGLOBIN DECREASED [None]
  - RASH [None]
